FAERS Safety Report 5481582-8 (Version None)
Quarter: 2007Q4

REPORT INFORMATION
  Report Type: 
  Country: None (occurrence: None)
  Receive Date: 20071010
  Receipt Date: 20071001
  Transmission Date: 20080405
  Serious: No
  Sender: FDA-Public Use
  Company Number: US-JNJFOC-20071000768

PATIENT
  Age: 20 Year
  Sex: Female

DRUGS (2)
  1. INVEGA [Suspect]
     Indication: SCHIZOPHRENIA
     Route: 048
     Dates: start: 20070901, end: 20071001
  2. LEXAPRO [Concomitant]
     Indication: SCHIZOPHRENIA

REACTIONS (1)
  - GALACTORRHOEA [None]
